FAERS Safety Report 8116220-9 (Version None)
Quarter: 2012Q1

REPORT INFORMATION
  Report Type: 
  Country: None (occurrence: None)
  Receive Date: 20120206
  Receipt Date: 20120130
  Transmission Date: 20120608
  Serious: Yes (Other)
  Sender: FDA-Public Use
  Company Number: KR-TEVA-320196ISR

PATIENT
  Age: 59 Year
  Sex: Female

DRUGS (2)
  1. METHOTREXATE [Suspect]
     Dosage: TOTAL DOSE: 15 190MG
     Route: 042
  2. METHOTREXATE [Suspect]
     Indication: LYMPHOMA
     Dosage: TOTAL DOSE: 48MG
     Route: 037

REACTIONS (1)
  - LEUKOENCEPHALOPATHY [None]
